FAERS Safety Report 7430479-2 (Version None)
Quarter: 2011Q2

REPORT INFORMATION
  Report Type: 
  Country: None (occurrence: None)
  Receive Date: 20110421
  Receipt Date: 20101203
  Transmission Date: 20111010
  Serious: No
  Sender: FDA-Public Use
  Company Number: US-ASTRAZENECA-2010SE57424

PATIENT
  Sex: Male

DRUGS (3)
  1. TOPROL-XL [Suspect]
     Indication: PALPITATIONS
     Route: 048
     Dates: start: 20050101, end: 20070301
  2. TOPROL-XL [Suspect]
     Route: 048
  3. TOPROL-XL [Suspect]
     Route: 048
     Dates: start: 20070301, end: 20070301

REACTIONS (2)
  - FEELING ABNORMAL [None]
  - HEART RATE IRREGULAR [None]
